FAERS Safety Report 8961736 (Version 2)
Quarter: 2012Q4

REPORT INFORMATION
  Report Type: Report from Study
  Country: FR (occurrence: FR)
  Receive Date: 20121213
  Receipt Date: 20121217
  Transmission Date: 20130627
  Serious: Yes (Other)
  Sender: FDA-Public Use
  Company Number: PHHY2012FR114044

PATIENT
  Age: 79 Year
  Sex: Female

DRUGS (7)
  1. ACLASTA/ZOLEDRONATE [Suspect]
     Indication: OSTEOPOROSIS
     Route: 042
     Dates: start: 20111012
  2. ACLASTA/ZOLEDRONATE [Suspect]
     Route: 042
     Dates: start: 20121107
  3. ALDACTAZINE [Concomitant]
  4. SIMVASTATINE [Concomitant]
  5. LANSOPRAZOLE [Concomitant]
  6. NATECAL [Concomitant]
     Dosage: UNK UKN, UNK
     Dates: start: 2011
  7. DOLIPRANE [Concomitant]

REACTIONS (2)
  - Spinal column injury [Unknown]
  - Back pain [Recovered/Resolved]
